FAERS Safety Report 9707232 (Version 1)
Quarter: 2013Q4

REPORT INFORMATION
  Report Type: Spontaneous
  Country: US (occurrence: None)
  Receive Date: 20131122
  Receipt Date: 20131122
  Transmission Date: 20140711
  Serious: Yes (Hospitalization)
  Sender: FDA-Public Use
  Company Number: None

PATIENT
  Age: 30 Year
  Sex: Male

DRUGS (1)
  1. DIVALPROEX [Suspect]
     Indication: CONVULSION
     Route: 048
     Dates: start: 20130724, end: 20131102

REACTIONS (2)
  - Dystonia [None]
  - Drug ineffective [None]
